FAERS Safety Report 5312472-9 (Version None)
Quarter: 2007Q2

REPORT INFORMATION
  Report Type: 
  Country: None (occurrence: None)
  Receive Date: 20070430
  Receipt Date: 20061212
  Transmission Date: 20071010
  Serious: No
  Sender: FDA-Public Use
  Company Number: 2006UW27437

PATIENT
  Sex: Male

DRUGS (3)
  1. NEXIUM [Suspect]
     Route: 048
  2. ZESTRIL [Suspect]
     Route: 048
  3. MUCINEX [Suspect]

REACTIONS (2)
  - COUGH [None]
  - WHEEZING [None]
